FAERS Safety Report 14199772 (Version 1)
Quarter: 2017Q4

REPORT INFORMATION
  Report Type: Spontaneous
  Country: US (occurrence: US)
  Receive Date: 20171117
  Receipt Date: 20171117
  Transmission Date: 20180321
  Serious: No
  Sender: FDA-Public Use
  Company Number: US-BAUSCH-BL-2017-022964

PATIENT
  Sex: Male

DRUGS (4)
  1. LASIX [Concomitant]
     Active Substance: FUROSEMIDE
     Indication: DIURETIC THERAPY
     Dosage: STARTED ABOUT 5 YEARS AGO
     Route: 048
     Dates: start: 2012
  2. SPIRINOLACTONE [Concomitant]
     Indication: DIURETIC THERAPY
     Dosage: STARTED ABOUT 5 YEARS AGO
     Route: 048
     Dates: start: 2012
  3. XIFAXAN [Suspect]
     Active Substance: RIFAXIMIN
     Indication: HEPATITIS C
     Dosage: STARTED PROBABLY 8 MONTHS AGO
     Route: 048
     Dates: end: 201708
  4. POTASSIUM [Concomitant]
     Active Substance: POTASSIUM
     Indication: DIURETIC THERAPY
     Dosage: ABOUT 5 YEARS AGO, AS NEEDED
     Route: 048
     Dates: start: 2012

REACTIONS (4)
  - Joint swelling [Recovering/Resolving]
  - Off label use [Recovered/Resolved]
  - Dizziness [Not Recovered/Not Resolved]
  - Fatigue [Not Recovered/Not Resolved]

NARRATIVE: CASE EVENT DATE: 2017
